FAERS Safety Report 15692612 (Version 1)
Quarter: 2018Q4

REPORT INFORMATION
  Report Type: Spontaneous
  Country: SE (occurrence: SE)
  Receive Date: 20181206
  Receipt Date: 20181206
  Transmission Date: 20190205
  Serious: Yes (Other)
  Sender: FDA-Public Use
  Company Number: SE-ROCHE-2223897

PATIENT
  Age: 34 Year
  Sex: Female

DRUGS (2)
  1. CORTISON [Concomitant]
     Active Substance: CORTISONE ACETATE
  2. MABTHERA [Suspect]
     Active Substance: RITUXIMAB
     Indication: MULTIPLE SCLEROSIS
     Route: 065

REACTIONS (3)
  - Off label use [Unknown]
  - Hydronephrosis [Unknown]
  - Eosinophilic cystitis [Unknown]
